FAERS Safety Report 22142091 (Version 1)
Quarter: 2023Q1

REPORT INFORMATION
  Report Type: Spontaneous
  Country: US (occurrence: None)
  Receive Date: 20230326
  Receipt Date: 20230326
  Transmission Date: 20230417
  Serious: Yes (Other)
  Sender: FDA-Public Use
  Company Number: None

PATIENT
  Age: 58 Year
  Sex: Female
  Weight: 85.05 kg

DRUGS (11)
  1. DULOXETINE [Suspect]
     Active Substance: DULOXETINE
     Indication: Fibromyalgia
     Dosage: OTHER QUANTITY : 1 CAPSULE(S);?FREQUENCY : DAILY;?
     Route: 048
     Dates: start: 20230110, end: 20230321
  2. AMLODIPINE [Concomitant]
     Active Substance: AMLODIPINE BESYLATE
  3. ATORVASTATIN [Concomitant]
     Active Substance: ATORVASTATIN
  4. HYDROCHLOROTHIAZIDE [Concomitant]
     Active Substance: HYDROCHLOROTHIAZIDE
  5. METFORMIN [Concomitant]
     Active Substance: METFORMIN HYDROCHLORIDE
  6. BACLOFEN [Concomitant]
     Active Substance: BACLOFEN
  7. OZEMPIC [Concomitant]
     Active Substance: SEMAGLUTIDE
  8. OMEGA 3 [Concomitant]
     Active Substance: CAPSAICIN
  9. MULTI-VITAMIN [Concomitant]
     Active Substance: .ALPHA.-TOCOPHEROL ACETATE, DL-\ASCORBIC ACID\CYANOCOBALAMIN\FLUORIDE ION\FOLIC ACID\NIACIN\PYRIDOXI
  10. PROBIOTICS NOS [Concomitant]
     Active Substance: PROBIOTICS NOS
  11. CALCIUM [Concomitant]
     Active Substance: CALCIUM

REACTIONS (12)
  - Visual impairment [None]
  - Vision blurred [None]
  - Nausea [None]
  - Vomiting [None]
  - Abdominal distension [None]
  - Constipation [None]
  - Pruritus [None]
  - Dry mouth [None]
  - Insomnia [None]
  - Sleep terror [None]
  - Chills [None]
  - Withdrawal syndrome [None]

NARRATIVE: CASE EVENT DATE: 20230321
